FAERS Safety Report 17553861 (Version 1)
Quarter: 2020Q1

REPORT INFORMATION
  Report Type: Spontaneous
  Country: US (occurrence: US)
  Receive Date: 20200317
  Receipt Date: 20200317
  Transmission Date: 20200409
  Serious: Yes (Other)
  Sender: FDA-Public Use
  Company Number: US-BEH-2020114418

PATIENT
  Age: 37 Year

DRUGS (1)
  1. HIZENTRA [Suspect]
     Active Substance: HUMAN IMMUNOGLOBULIN G
     Indication: PRIMARY IMMUNODEFICIENCY SYNDROME
     Dosage: UNK
     Route: 058

REACTIONS (5)
  - Chromaturia [Unknown]
  - Headache [Unknown]
  - Diarrhoea [Unknown]
  - Nephrolithiasis [Unknown]
  - Fatigue [Unknown]

NARRATIVE: CASE EVENT DATE: 20200306
